FAERS Safety Report 7422580-4 (Version None)
Quarter: 2011Q2

REPORT INFORMATION
  Report Type: 
  Country: None (occurrence: None)
  Receive Date: 20110419
  Receipt Date: 20110408
  Transmission Date: 20111010
  Serious: Yes (Other)
  Sender: FDA-Public Use
  Company Number: US-JNJFOC-20110404343

PATIENT
  Sex: Female
  Weight: 102.06 kg

DRUGS (7)
  1. LIDODERM [Concomitant]
     Indication: PAIN
     Route: 062
  2. ASACOL [Concomitant]
     Indication: CROHN'S DISEASE
     Route: 048
  3. DURAGESIC [Suspect]
     Indication: BACK PAIN
     Route: 065
  4. NEURONTIN [Concomitant]
     Indication: NEUROPATHY PERIPHERAL
     Route: 048
  5. FLECTOR PATCHES [Concomitant]
     Indication: PAIN
     Route: 062
  6. OXYCODONE [Concomitant]
     Indication: PAIN
     Route: 048
  7. NEURONTIN [Concomitant]
     Indication: PAIN
     Route: 048

REACTIONS (2)
  - TYPE 2 DIABETES MELLITUS [None]
  - DRUG INEFFECTIVE [None]
